FAERS Safety Report 4559187-2 (Version None)
Quarter: 2005Q1

REPORT INFORMATION
  Report Type: 
  Country: None (occurrence: None)
  Receive Date: 20050124
  Receipt Date: 20050113
  Transmission Date: 20050727
  Serious: Yes (Hospitalization)
  Sender: FDA-Public Use
  Company Number: US-AMGEN-US106426

PATIENT
  Sex: Female

DRUGS (6)
  1. ENBREL [Suspect]
     Indication: RHEUMATOID ARTHRITIS
     Route: 058
     Dates: start: 20030413, end: 20040310
  2. METHOTREXATE [Suspect]
     Route: 048
     Dates: start: 20020520, end: 20040310
  3. ARAVA [Concomitant]
     Route: 048
     Dates: start: 20030228, end: 20031124
  4. VIOXX [Concomitant]
     Route: 048
     Dates: start: 20040519
  5. LIPITOR [Concomitant]
     Route: 048
     Dates: start: 20020521
  6. GENTAMICIN [Concomitant]
     Route: 030

REACTIONS (3)
  - ADRENAL MASS [None]
  - BALANCE DISORDER [None]
  - VERTIGO [None]
